FAERS Safety Report 21907872 (Version 1)
Quarter: 2023Q1

REPORT INFORMATION
  Report Type: Spontaneous
  Country: US (occurrence: US)
  Receive Date: 20230125
  Receipt Date: 20230125
  Transmission Date: 20230418
  Serious: Yes (Other)
  Sender: FDA-Public Use
  Company Number: US-SANOFI-01456502

PATIENT
  Sex: Female

DRUGS (1)
  1. ACT ANTICAVITY FLUORIDE KIDS GROOVY GRAPE [Suspect]
     Active Substance: SODIUM FLUORIDE
     Dosage: UNK
     Route: 065

REACTIONS (1)
  - Burn oral cavity [Unknown]
